FAERS Safety Report 24443672 (Version 1)
Quarter: 2024Q4

REPORT INFORMATION
  Report Type: Spontaneous
  Country: PA (occurrence: PA)
  Receive Date: 20241016
  Receipt Date: 20241016
  Transmission Date: 20250115
  Serious: Yes (Other)
  Sender: SANDOZ
  Company Number: PA-002147023-NVSC2022PA155336

PATIENT
  Age: 63 Year
  Sex: Female

DRUGS (3)
  1. ANASTROZOLE [Suspect]
     Active Substance: ANASTROZOLE
     Indication: Breast cancer metastatic
     Dosage: UNK (AT NIGHT)
     Route: 065
     Dates: start: 20220704
  2. KISQALI FEMARA CO-PACK [Suspect]
     Active Substance: LETROZOLE\RIBOCICLIB
     Indication: Breast cancer metastatic
     Dosage: 400 MG, QD (AT NOON)
     Route: 048
     Dates: start: 20220704
  3. ZOMETA [Suspect]
     Active Substance: ZOLEDRONIC ACID
     Indication: Product used for unknown indication
     Dosage: UNK
     Route: 065

REACTIONS (14)
  - Bradycardia [Recovered/Resolved]
  - Metastases to spine [Unknown]
  - Metastases to bone [Unknown]
  - Metastases to pelvis [Unknown]
  - Haemoglobin increased [Unknown]
  - Musculoskeletal chest pain [Recovering/Resolving]
  - Sarcopenia [Unknown]
  - Abdominal pain upper [Unknown]
  - Pain in extremity [Unknown]
  - Weight decreased [Unknown]
  - Neoplasm [Recovering/Resolving]
  - Spinal pain [Recovered/Resolved]
  - Bone pain [Recovered/Resolved]
  - Diarrhoea [Unknown]

NARRATIVE: CASE EVENT DATE: 20221219
